FAERS Safety Report 7762370-6 (Version None)
Quarter: 2011Q3

REPORT INFORMATION
  Report Type: 
  Country: None (occurrence: None)
  Receive Date: 20110920
  Receipt Date: 20110909
  Transmission Date: 20111222
  Serious: Yes (Other)
  Sender: FDA-Public Use
  Company Number: FR-ROCHE-801805

PATIENT
  Sex: Male
  Weight: 69 kg

DRUGS (5)
  1. RIBAVIRIN [Suspect]
     Dosage: DOSING AMOUNT IN MG
     Route: 048
  2. PEGINTERFERON ALFA-2A [Suspect]
     Dosage: FREQUENCY: QS, DOSING AMOUNT IN UG
     Route: 058
  3. RO 5024048 (POLYMERASE INHIBITOR) [Suspect]
     Dosage: DOSING AMOUNT IN MG
     Route: 048
  4. RITONAVIR [Suspect]
     Dosage: DOSING AMOUNT IN MG
     Route: 048
     Dates: start: 20110621
  5. RO 5190591 (ITMN-191) [Suspect]
     Dosage: DOSING AMOUNT IN MG
     Route: 048
     Dates: start: 20110621

REACTIONS (1)
  - IRRITABILITY [None]
